FAERS Safety Report 10036123 (Version 1)
Quarter: 2014Q1

REPORT INFORMATION
  Report Type: Report from Study
  Country: US (occurrence: US)
  Receive Date: 20140325
  Receipt Date: 20140325
  Transmission Date: 20141002
  Serious: Yes (Other)
  Sender: FDA-Public Use
  Company Number: US-ABBVIE-14P-163-1214003-00

PATIENT
  Sex: Female

DRUGS (20)
  1. HUMIRA [Suspect]
     Indication: CROHN^S DISEASE
  2. LEXAPRO [Concomitant]
     Indication: DEPRESSION
  3. BISOPROLOL [Concomitant]
     Indication: BLOOD PRESSURE
  4. AMLODIPINE [Concomitant]
     Indication: BLOOD PRESSURE
  5. SUCRALFATE [Concomitant]
     Indication: GASTRIC DISORDER
     Dosage: BEFORE MEALS
  6. PROTONIX [Concomitant]
     Indication: PRODUCT USED FOR UNKNOWN INDICATION
  7. WELLBUTRIN [Concomitant]
     Indication: DRUG THERAPY
  8. LIBRAX [Concomitant]
     Indication: PRODUCT USED FOR UNKNOWN INDICATION
  9. UNKNOWN MEDICATION [Concomitant]
     Indication: ULCER
  10. CREON [Concomitant]
     Indication: PANCREATIC DISORDER
  11. OTC PROBIOTIC [Concomitant]
     Indication: PRODUCT USED FOR UNKNOWN INDICATION
  12. GENERIC AMBIEN [Concomitant]
     Indication: INSOMNIA
  13. CODEINE [Concomitant]
     Indication: DIARRHOEA
  14. CRESTOR [Concomitant]
     Indication: BLOOD CHOLESTEROL
  15. LOSARTAN [Concomitant]
     Indication: BLOOD PRESSURE
  16. LEVAMIR [Concomitant]
     Indication: PRODUCT USED FOR UNKNOWN INDICATION
     Dosage: SLIDING SCALE
  17. NOVOLOG [Concomitant]
     Indication: PRODUCT USED FOR UNKNOWN INDICATION
     Dosage: SLIDING SCALE
  18. PREDNISONE [Concomitant]
     Indication: PRODUCT USED FOR UNKNOWN INDICATION
  19. DURAGESIC PATCH [Concomitant]
     Indication: GASTROINTESTINAL PAIN
     Route: 062
  20. DURAGESIC PATCH [Concomitant]
     Indication: CROHN^S DISEASE

REACTIONS (8)
  - Gallbladder disorder [Not Recovered/Not Resolved]
  - Ileal ulcer [Unknown]
  - Depression [Unknown]
  - Diabetes mellitus [Unknown]
  - Blood cholesterol increased [Unknown]
  - Hypertension [Unknown]
  - Gastrointestinal pain [Unknown]
  - Crohn^s disease [Unknown]
